FAERS Safety Report 11650539 (Version 7)
Quarter: 2016Q1

REPORT INFORMATION
  Report Type: Report from Study
  Country: US (occurrence: US)
  Receive Date: 20151021
  Receipt Date: 20160327
  Transmission Date: 20160525
  Serious: No
  Sender: FDA-Public Use
  Company Number: PHEH2015US020646

PATIENT
  Age: 53 Year
  Sex: Female
  Weight: 57.14 kg

DRUGS (1)
  1. GILENYA [Suspect]
     Active Substance: FINGOLIMOD HYDROCHLORIDE
     Indication: MULTIPLE SCLEROSIS
     Dosage: 0.5 MG, QD
     Route: 048
     Dates: start: 20150427

REACTIONS (2)
  - Burns second degree [Recovering/Resolving]
  - Gait disturbance [Unknown]

NARRATIVE: CASE EVENT DATE: 201508
